FAERS Safety Report 5018325-8 (Version None)
Quarter: 2006Q2

REPORT INFORMATION
  Report Type: 
  Country: None (occurrence: None)
  Receive Date: 20060530
  Receipt Date: 20050722
  Transmission Date: 20061013
  Serious: Yes (Hospitalization, Other)
  Sender: FDA-Public Use
  Company Number: 2005106336

PATIENT
  Age: 66 Year
  Sex: Female

DRUGS (4)
  1. LYRICA [Suspect]
     Indication: RESTLESS LEGS SYNDROME
     Dosage: ORAL
     Route: 048
     Dates: start: 20050101, end: 20050601
  2. TRAMADOL HCL [Concomitant]
  3. PRESOMEN (ESTROGENS CONJUGATED) [Concomitant]
  4. DYTIDE (BENZTHIAZIDE, TRIAMTERENE) [Concomitant]

REACTIONS (2)
  - HAEMANGIOMA [None]
  - HEPATITIS [None]
